FAERS Safety Report 11231779 (Version 1)
Quarter: 2015Q2

REPORT INFORMATION
  Report Type: Spontaneous
  Country: US (occurrence: None)
  Receive Date: 20150630
  Receipt Date: 20150630
  Transmission Date: 20150821
  Serious: No
  Sender: FDA-Public Use
  Company Number: None

PATIENT

DRUGS (2)
  1. DEPAKOTE [Suspect]
     Active Substance: DIVALPROEX SODIUM
     Route: 048
  2. ZYPREXA [Suspect]
     Active Substance: OLANZAPINE
     Route: 048

REACTIONS (1)
  - Drug dispensed to wrong patient [None]
